FAERS Safety Report 9741121 (Version 2)
Quarter: 2013Q4

REPORT INFORMATION
  Report Type: Spontaneous
  Country: DE (occurrence: DE)
  Receive Date: 20131209
  Receipt Date: 20131209
  Transmission Date: 20140711
  Serious: Yes (Hospitalization)
  Sender: FDA-Public Use
  Company Number: DE-UCBSA-099321

PATIENT
  Sex: Male

DRUGS (7)
  1. NEUPRO [Suspect]
     Indication: PARKINSON^S DISEASE
     Dosage: DOSE: 5X 8MG PATCHES
     Route: 062
  2. NEUPRO [Suspect]
     Indication: HYPOKINESIA
     Dosage: DOSE: 5X 8MG PATCHES
     Route: 062
  3. NEUPRO [Suspect]
     Indication: PARKINSON^S DISEASE
     Dosage: 8 MG PATCH
     Route: 062
     Dates: end: 20130922
  4. NEUPRO [Suspect]
     Indication: HYPOKINESIA
     Dosage: 8 MG PATCH
     Route: 062
     Dates: end: 20130922
  5. LEVODOPA [Concomitant]
     Indication: HYPOKINESIA
     Route: 048
  6. CITALOPRAM [Concomitant]
     Indication: DEPRESSION
     Route: 048
     Dates: end: 20130922
  7. CLOZAPIN [Concomitant]
     Indication: RESTLESSNESS
     Route: 048
     Dates: end: 20130922

REACTIONS (4)
  - Acute psychosis [Recovering/Resolving]
  - Psychomotor hyperactivity [Recovered/Resolved]
  - Overdose [Unknown]
  - Wrong technique in drug usage process [Unknown]
